FAERS Safety Report 7932404-4 (Version None)
Quarter: 2011Q4

REPORT INFORMATION
  Report Type: 
  Country: None (occurrence: None)
  Receive Date: 20111122
  Receipt Date: 20111115
  Transmission Date: 20120403
  Serious: Yes (Hospitalization)
  Sender: FDA-Public Use
  Company Number: US-BIOGENIDEC-2011BI041506

PATIENT
  Sex: Female

DRUGS (1)
  1. TYSABRI [Suspect]
     Indication: MULTIPLE SCLEROSIS
     Route: 042
     Dates: start: 20080829

REACTIONS (6)
  - GAIT DISTURBANCE [None]
  - NEUROGENIC BLADDER [None]
  - ANIMAL SCRATCH [None]
  - FALL [None]
  - FATIGUE [None]
  - DEVICE DEPOSIT ISSUE [None]
